FAERS Safety Report 9336555 (Version 2)
Quarter: 2013Q2

REPORT INFORMATION
  Report Type: Spontaneous
  Country: US (occurrence: US)
  Receive Date: 20130607
  Receipt Date: 20130628
  Transmission Date: 20140414
  Serious: No
  Sender: FDA-Public Use
  Company Number: US-PFIZER INC-2013168791

PATIENT
  Sex: Female

DRUGS (2)
  1. IBUPROFEN [Suspect]
     Indication: ARTHRITIS
     Dosage: UNK
  2. MISOPROSTOL [Suspect]
     Dosage: UNK

REACTIONS (2)
  - Cystitis interstitial [Unknown]
  - Condition aggravated [Unknown]
